FAERS Safety Report 20357377 (Version 3)
Quarter: 2023Q2

REPORT INFORMATION
  Report Type: Spontaneous
  Country: US (occurrence: US)
  Receive Date: 20220120
  Receipt Date: 20230529
  Transmission Date: 20230722
  Serious: Yes (Hospitalization)
  Sender: FDA-Public Use
  Company Number: US-UCBSA-2022001607

PATIENT
  Age: 54 Year
  Sex: Female

DRUGS (1)
  1. CIMZIA [Suspect]
     Active Substance: CERTOLIZUMAB PEGOL
     Indication: Product used for unknown indication
     Dosage: UNK
     Dates: start: 202111

REACTIONS (5)
  - COVID-19 [Unknown]
  - Stomatitis [Unknown]
  - Oral mucosal exfoliation [Unknown]
  - Ocular hyperaemia [Unknown]
  - Tongue exfoliation [Unknown]

NARRATIVE: CASE EVENT DATE: 20211228
